FAERS Safety Report 5261515-X (Version None)
Quarter: 2007Q1

REPORT INFORMATION
  Report Type: 
  Country: None (occurrence: None)
  Receive Date: 20070307
  Receipt Date: 20070220
  Transmission Date: 20070707
  Serious: Yes (Hospitalization)
  Sender: FDA-Public Use
  Company Number: US019306

PATIENT
  Age: 42 Year
  Sex: Female

DRUGS (2)
  1. MODAFINIL [Suspect]
     Indication: HYPERSOMNIA
     Dosage: 100 MG QD ORAL
     Route: 048
  2. CITALOPRAM HYDROBROMIDE [Suspect]
     Indication: SEASONAL AFFECTIVE DISORDER
     Dosage: 20 MG QD
     Dates: start: 20061001, end: 20070101

REACTIONS (4)
  - BALANCE DISORDER [None]
  - MUSCLE SPASMS [None]
  - MYOCLONUS [None]
  - SOMNOLENCE [None]
